FAERS Safety Report 10950219 (Version 8)
Quarter: 2016Q2

REPORT INFORMATION
  Report Type: Spontaneous
  Country: US (occurrence: US)
  Receive Date: 20150324
  Receipt Date: 20160406
  Transmission Date: 20160815
  Serious: Yes (Hospitalization, Congenital Anomaly, Other)
  Sender: FDA-Public Use
  Company Number: US-ELI_LILLY_AND_COMPANY-US201503004957

PATIENT
  Age: 0 Day

DRUGS (1)
  1. PROZAC [Suspect]
     Active Substance: FLUOXETINE HYDROCHLORIDE
     Indication: PRODUCT USED FOR UNKNOWN INDICATION
     Dosage: UNK, UNKNOWN
     Route: 064

REACTIONS (14)
  - Headache [Not Recovered/Not Resolved]
  - Cardiac murmur [Unknown]
  - Oppositional defiant disorder [Unknown]
  - Depression [Unknown]
  - Craniosynostosis [Unknown]
  - Selective eating disorder [Unknown]
  - Affective disorder [Unknown]
  - Transient tachypnoea of the newborn [Recovered/Resolved]
  - Attention deficit/hyperactivity disorder [Unknown]
  - Respiratory distress [Unknown]
  - Jaundice neonatal [Unknown]
  - Foetal exposure during pregnancy [Recovered/Resolved]
  - Premature baby [Unknown]
  - Body temperature abnormal [Unknown]

NARRATIVE: CASE EVENT DATE: 20001103
